FAERS Safety Report 6247142-6 (Version None)
Quarter: 2009Q2

REPORT INFORMATION
  Report Type: 
  Country: None (occurrence: None)
  Receive Date: 20090624
  Receipt Date: 20090624
  Transmission Date: 20091009
  Serious: Yes (Life-Threatening)
  Sender: FDA-Public Use
  Company Number: None

PATIENT
  Sex: Female
  Weight: 68 kg

DRUGS (10)
  1. HYDROMORPHONE HCL [Suspect]
     Indication: PAIN
     Dosage: 0.2 MG DEMAND Q10 MIN
     Dates: start: 20090323, end: 20090324
  2. HEPARIN [Concomitant]
  3. CALCIUM GLUCONATE [Concomitant]
  4. CEFAZOLIN [Concomitant]
  5. MAGNESIUM SULFATE [Concomitant]
  6. METRONIDAZOLE [Concomitant]
  7. RANITIDINE [Concomitant]
  8. HETASTARCH 6% IN 0.9% SODIUM CHLORIDE IN PLASTIC CONTAINER [Concomitant]
  9. PHENLEPHRINE IV DRIP [Concomitant]
  10. POTASSIUM CHLORIDE [Concomitant]

REACTIONS (4)
  - LOSS OF CONSCIOUSNESS [None]
  - MEDICATION ERROR [None]
  - TACHYCARDIA [None]
  - UNEVALUABLE EVENT [None]
